FAERS Safety Report 14695139 (Version 1)
Quarter: 2018Q1

REPORT INFORMATION
  Report Type: Spontaneous
  Country: AU (occurrence: AU)
  Receive Date: 20180329
  Receipt Date: 20180329
  Transmission Date: 20180509
  Serious: Yes (Other)
  Sender: FDA-Public Use
  Company Number: AU-BAYER-2018-061870

PATIENT

DRUGS (1)
  1. NEXAVAR [Suspect]
     Active Substance: SORAFENIB
     Indication: HEPATOCELLULAR CARCINOMA
     Dosage: DAILY DOSE OF AT LEAST 400 MG FOR AT LEAST 20 OF THE LAST 28 DAYS OF TREATMENT

REACTIONS (1)
  - Hepatocellular carcinoma [None]
